FAERS Safety Report 9412251 (Version 4)
Quarter: 2013Q4

REPORT INFORMATION
  Report Type: Report from Study
  Country: CN (occurrence: CN)
  Receive Date: 20130722
  Receipt Date: 20131210
  Transmission Date: 20140711
  Serious: Yes (Death, Hospitalization)
  Sender: FDA-Public Use
  Company Number: CN-SANOFI-AVENTIS-2013SA072874

PATIENT
  Age: 48 Year
  Sex: Female
  Weight: 50 kg

DRUGS (19)
  1. AFLIBERCEPT [Suspect]
     Indication: ADENOCARCINOMA
     Route: 042
     Dates: start: 20130520, end: 20130520
  2. AFLIBERCEPT [Suspect]
     Indication: ADENOCARCINOMA
     Route: 042
     Dates: start: 20130619, end: 20130619
  3. 5-FU [Suspect]
     Indication: ADENOCARCINOMA
     Route: 040
     Dates: start: 20130520, end: 20130520
  4. 5-FU [Suspect]
     Indication: ADENOCARCINOMA
     Route: 042
     Dates: start: 20130520, end: 20130522
  5. 5-FU [Suspect]
     Indication: ADENOCARCINOMA
     Route: 040
     Dates: start: 20130619, end: 20130619
  6. 5-FU [Suspect]
     Indication: ADENOCARCINOMA
     Route: 042
     Dates: start: 20130619, end: 20130621
  7. IRINOTECAN [Suspect]
     Indication: ADENOCARCINOMA
     Route: 042
     Dates: start: 20130520, end: 20130520
  8. IRINOTECAN [Suspect]
     Indication: ADENOCARCINOMA
     Route: 042
     Dates: start: 20130619, end: 20130619
  9. LEUCOVORIN [Suspect]
     Indication: ADENOCARCINOMA
     Route: 042
     Dates: start: 20130520, end: 20130520
  10. LEUCOVORIN [Suspect]
     Indication: ADENOCARCINOMA
     Route: 042
     Dates: start: 20130619, end: 20130619
  11. PANTOPRAZOLE SODIUM [Concomitant]
     Dates: start: 20130619, end: 20130621
  12. TROPISETRON [Concomitant]
     Dates: start: 20130619, end: 20130621
  13. ORNITHINE ASPARTATE [Concomitant]
     Dates: start: 20130619, end: 20130621
  14. VITAMIN B6 [Concomitant]
     Dates: start: 20130619, end: 20130621
  15. METOCLOPRAMIDE [Concomitant]
     Dates: start: 20130619, end: 20130621
  16. ATROPINE [Concomitant]
     Dates: start: 20130619, end: 20130619
  17. CARBAZOCHROME SODIUM SULFONATE [Concomitant]
     Dates: start: 20130620, end: 20130620
  18. THROMBIN [Concomitant]
     Dates: start: 20130620, end: 20130620
  19. FAT EMULSIONS [Concomitant]
     Dates: start: 20130620, end: 20130620

REACTIONS (2)
  - Cardiopulmonary failure [Fatal]
  - Fatigue [Not Recovered/Not Resolved]
